FAERS Safety Report 6876273-2 (Version None)
Quarter: 2010Q3

REPORT INFORMATION
  Report Type: 
  Country: None (occurrence: None)
  Receive Date: 20100727
  Receipt Date: 20100721
  Transmission Date: 20110219
  Serious: Yes (Death)
  Sender: FDA-Public Use
  Company Number: B0660282A

PATIENT
  Sex: Female
  Weight: 42 kg

DRUGS (10)
  1. TYKERB [Suspect]
     Indication: BREAST CANCER
     Dosage: 1250MG PER DAY
     Route: 048
     Dates: start: 20100308, end: 20100308
  2. TYKERB [Suspect]
     Dosage: 1000MG PER DAY
     Route: 048
     Dates: start: 20100329, end: 20100401
  3. XELODA [Concomitant]
     Route: 048
     Dates: start: 20100308, end: 20100401
  4. UNKNOWN DRUG [Concomitant]
     Indication: LYMPHANGIOSIS CARCINOMATOSA
  5. DUROTEP [Concomitant]
     Indication: CANCER PAIN
     Route: 062
     Dates: start: 20100308, end: 20100401
  6. UNKNOWN DRUG [Concomitant]
     Indication: CANCER PAIN
     Route: 048
     Dates: start: 20100308, end: 20100401
  7. LOXONIN [Concomitant]
     Indication: CANCER PAIN
     Route: 048
     Dates: start: 20100308, end: 20100401
  8. RABEPRAZOLE SODIUM [Concomitant]
     Route: 048
     Dates: start: 20100308, end: 20100401
  9. MYSLEE [Concomitant]
     Indication: INSOMNIA
     Route: 048
     Dates: start: 20100308, end: 20100401
  10. CONSTAN [Concomitant]
     Indication: INSOMNIA
     Route: 048
     Dates: start: 20100308, end: 20100401

REACTIONS (6)
  - COUGH [None]
  - DIARRHOEA [None]
  - DYSPNOEA [None]
  - INTERSTITIAL LUNG DISEASE [None]
  - RALES [None]
  - TACHYPNOEA [None]
